FAERS Safety Report 14789218 (Version 7)
Quarter: 2018Q3

REPORT INFORMATION
  Report Type: Report from Study
  Country: IL (occurrence: IL)
  Receive Date: 20180423
  Receipt Date: 20180926
  Transmission Date: 20181010
  Serious: Yes (Life-Threatening, Hospitalization, Other)
  Sender: FDA-Public Use
  Company Number: PHHY2017IL072342

PATIENT
  Age: 57 Year
  Sex: Female
  Weight: 85.9 kg

DRUGS (3)
  1. COSENTYX [Suspect]
     Active Substance: SECUKINUMAB
     Dosage: 300 MG, QMO
     Route: 058
     Dates: start: 20170917
  2. COSENTYX [Suspect]
     Active Substance: SECUKINUMAB
     Indication: PSORIATIC ARTHROPATHY
     Dosage: 300 MG, QMO
     Route: 058
     Dates: start: 20170313
  3. COSENTYX [Suspect]
     Active Substance: SECUKINUMAB
     Dosage: 300 MG, QMO
     Route: 058
     Dates: start: 20180316

REACTIONS (43)
  - Hypokinesia [Not Recovered/Not Resolved]
  - Cough [Recovered/Resolved]
  - Joint swelling [Not Recovered/Not Resolved]
  - Pyrexia [Recovered/Resolved]
  - Spinal fracture [Recovering/Resolving]
  - Fall [Recovering/Resolving]
  - Blood glucose increased [Recovered/Resolved]
  - Inflammation [Recovering/Resolving]
  - Food craving [Not Recovered/Not Resolved]
  - Blood cholesterol increased [Unknown]
  - Liver disorder [Unknown]
  - Pharyngeal inflammation [Recovered/Resolved]
  - Bone pain [Recovering/Resolving]
  - Respiratory tract inflammation [Recovered/Resolved]
  - Nervousness [Unknown]
  - Gait disturbance [Not Recovered/Not Resolved]
  - Alopecia [Not Recovered/Not Resolved]
  - Psoriasis [Not Recovered/Not Resolved]
  - Blood glucose increased [Not Recovered/Not Resolved]
  - Peripheral swelling [Recovering/Resolving]
  - Gallbladder enlargement [Not Recovered/Not Resolved]
  - Pain [Not Recovered/Not Resolved]
  - Mental disorder [Recovering/Resolving]
  - Insomnia [Not Recovered/Not Resolved]
  - Heat stroke [Recovered/Resolved]
  - Foreign body in respiratory tract [Recovered/Resolved]
  - Inflammatory pain [Not Recovered/Not Resolved]
  - Vaginal polyp [Unknown]
  - Chest pain [Recovering/Resolving]
  - Weight decreased [Unknown]
  - Glycosylated haemoglobin increased [Not Recovered/Not Resolved]
  - Abdominal pain [Unknown]
  - Localised infection [Recovering/Resolving]
  - Vaginal haemorrhage [Unknown]
  - Cholelithiasis [Not Recovered/Not Resolved]
  - Pain in extremity [Unknown]
  - Back pain [Recovering/Resolving]
  - Weight increased [Unknown]
  - Pyrexia [Recovered/Resolved]
  - Fractured coccyx [Recovering/Resolving]
  - Dysstasia [Not Recovered/Not Resolved]
  - Inappropriate schedule of drug administration [Unknown]
  - Fatigue [Not Recovered/Not Resolved]

NARRATIVE: CASE EVENT DATE: 20170313
